FAERS Safety Report 23062840 (Version 1)
Quarter: 2023Q4

REPORT INFORMATION
  Report Type: Other
  Country: GB (occurrence: GB)
  Receive Date: 20231013
  Receipt Date: 20231013
  Transmission Date: 20240110
  Serious: Yes (Hospitalization)
  Sender: FDA-Public Use
  Company Number: None

PATIENT
  Age: 36 Year
  Sex: Male
  Weight: 125 kg

DRUGS (1)
  1. LOPERAMIDE [Suspect]
     Active Substance: LOPERAMIDE
     Indication: Irritable bowel syndrome
     Dosage: CAPSULE
     Route: 065

REACTIONS (3)
  - Pancreatitis acute [None]
  - Medication error [Unknown]
  - Off label use [Unknown]
